FAERS Safety Report 6109576-X (Version None)
Quarter: 2009Q1

REPORT INFORMATION
  Report Type: 
  Country: None (occurrence: None)
  Receive Date: 20090310
  Receipt Date: 20090227
  Transmission Date: 20090719
  Serious: Yes (Other)
  Sender: FDA-Public Use
  Company Number: PHEH2009US02169

PATIENT
  Age: 51 Year
  Sex: Male

DRUGS (1)
  1. RITALIN [Suspect]
     Indication: PSYCHOMOTOR HYPERACTIVITY
     Dosage: UNK
     Dates: start: 19650101, end: 19740101

REACTIONS (2)
  - BIPOLAR DISORDER [None]
  - MENTAL DISORDER [None]
